FAERS Safety Report 4655173-2 (Version None)
Quarter: 2005Q2

REPORT INFORMATION
  Report Type: 
  Country: None (occurrence: None)
  Receive Date: 20050506
  Receipt Date: 20050425
  Transmission Date: 20051028
  Serious: Yes (Hospitalization)
  Sender: FDA-Public Use
  Company Number: US-GLAXOSMITHKLINE-A0555560A

PATIENT
  Sex: Female

DRUGS (2)
  1. PAXIL CR [Suspect]
     Indication: DEPRESSION
     Route: 048
     Dates: end: 20050301
  2. SEROQUEL [Concomitant]

REACTIONS (2)
  - DEPRESSION [None]
  - DRUG INEFFECTIVE [None]
